FAERS Safety Report 22644561 (Version 1)
Quarter: 2023Q2

REPORT INFORMATION
  Report Type: Spontaneous
  Country: US (occurrence: US)
  Receive Date: 20230627
  Receipt Date: 20230627
  Transmission Date: 20230722
  Serious: No
  Sender: FDA-Public Use
  Company Number: US-JNJFOC-20230612914

PATIENT
  Sex: Female

DRUGS (2)
  1. ZYRTEC [Suspect]
     Active Substance: CETIRIZINE HYDROCHLORIDE
     Indication: Urticaria
     Dosage: PILL
     Route: 065
  2. TRIAMCINOLONE [Concomitant]
     Active Substance: TRIAMCINOLONE
     Indication: Urticaria
     Route: 061

REACTIONS (3)
  - Urticaria [Unknown]
  - Off label use [Unknown]
  - Therapeutic response unexpected [Unknown]
